FAERS Safety Report 19657714 (Version 1)
Quarter: 2021Q3

REPORT INFORMATION
  Report Type: Spontaneous
  Country: BR (occurrence: BR)
  Receive Date: 20210804
  Receipt Date: 20210804
  Transmission Date: 20211014
  Serious: Yes (Other)
  Sender: FDA-Public Use
  Company Number: NVSC2021BR152170

PATIENT
  Age: 10 Year
  Sex: Male
  Weight: 48 kg

DRUGS (4)
  1. KOIDE D [Concomitant]
     Indication: HYPERSENSITIVITY
     Dosage: UNK, QD (SINCE MANY YEARS AGO)
     Route: 048
  2. ANNITA [Concomitant]
     Active Substance: NITAZOXANIDE
     Indication: PROPHYLAXIS
     Dosage: 2 DF, QD (STOP DATE: AFTER 3 DAYS)
     Route: 048
     Dates: start: 2021
  3. RISPERIDONE. [Suspect]
     Active Substance: RISPERIDONE
     Indication: AGITATION
     Dosage: 1 MG, QD
     Route: 048
     Dates: start: 202006
  4. RISPERIDONE. [Suspect]
     Active Substance: RISPERIDONE
     Indication: INSOMNIA
     Dosage: 1 MG, QD
     Route: 048
     Dates: start: 202006, end: 202006

REACTIONS (6)
  - Agitation [Recovered/Resolved]
  - Drug ineffective [Not Recovered/Not Resolved]
  - Anger [Recovered/Resolved]
  - Psychomotor hyperactivity [Not Recovered/Not Resolved]
  - Sleep disorder [Not Recovered/Not Resolved]
  - Insomnia [Not Recovered/Not Resolved]

NARRATIVE: CASE EVENT DATE: 202106
